FAERS Safety Report 5362693-4 (Version None)
Quarter: 2007Q2

REPORT INFORMATION
  Report Type: 
  Country: None (occurrence: None)
  Receive Date: 20070612
  Receipt Date: 20070601
  Transmission Date: 20071010
  Serious: Yes (Hospitalization)
  Sender: FDA-Public Use
  Company Number: RENA-12143

PATIENT
  Age: 67 Year
  Sex: Female

DRUGS (4)
  1. RENAGEL [Suspect]
     Indication: HYPERPHOSPHATAEMIA
     Dosage: 1.6 G TID PO
     Route: 048
     Dates: start: 20070106, end: 20070122
  2. ROCALTROL. MFR: HOFFMAN-LA ROCHE,INC. [Concomitant]
  3. GUTRON. MFR: HORMON-CHEMIE MUNCHEN [Concomitant]
  4. ESPO. MFR: KIRIN BREWERY CO. LTD. [Concomitant]

REACTIONS (1)
  - UPPER GASTROINTESTINAL HAEMORRHAGE [None]
